FAERS Safety Report 8580330 (Version 3)
Quarter: 2015Q2

REPORT INFORMATION
  Report Type: Spontaneous
  Country: US (occurrence: US)
  Receive Date: 20120525
  Receipt Date: 20150514
  Transmission Date: 20150821
  Serious: Yes (Hospitalization)
  Sender: FDA-Public Use
  Company Number: US-BAYER-2012-049475

PATIENT
  Age: 26 Year
  Sex: Female
  Weight: 72.56 kg

DRUGS (12)
  1. ROCEPHIN [Concomitant]
     Active Substance: CEFTRIAXONE SODIUM
     Dosage: 250 MG, UNK
     Route: 030
     Dates: start: 20110108
  2. PRAVASTATIN [Concomitant]
     Active Substance: PRAVASTATIN\PRAVASTATIN SODIUM
  3. CIPRO [Concomitant]
     Active Substance: CIPROFLOXACIN HYDROCHLORIDE
     Indication: OTITIS MEDIA ACUTE
  4. CLARITIN [Concomitant]
     Active Substance: LORATADINE
     Dosage: 10 MG, DAILY
     Route: 048
     Dates: start: 20110111
  5. LOPRESSOR [Concomitant]
     Active Substance: METOPROLOL TARTRATE
  6. ACETAMINOPHEN. [Concomitant]
     Active Substance: ACETAMINOPHEN
     Dosage: 500MG
     Route: 048
     Dates: start: 20110108
  7. YAZ [Suspect]
     Active Substance: DROSPIRENONE\ETHINYL ESTRADIOL
     Indication: CONTRACEPTION
     Dosage: UNK
     Dates: start: 201008, end: 201102
  8. PANTOPRAZOLE [Concomitant]
     Active Substance: PANTOPRAZOLE SODIUM
     Dosage: 40MG EVERY DAY
     Dates: start: 20101122
  9. GIANVI [Suspect]
     Active Substance: DROSPIRENONE\ETHINYL ESTRADIOL
     Indication: CONTRACEPTION
     Dosage: UNK
     Dates: start: 201008, end: 201102
  10. CIPRO [Concomitant]
     Active Substance: CIPROFLOXACIN HYDROCHLORIDE
     Indication: ACUTE SINUSITIS
     Dosage: 500 MG, UNK
     Route: 048
     Dates: start: 20110111
  11. AZITHROMYCIN [Concomitant]
     Active Substance: AZITHROMYCIN ANHYDROUS
     Dosage: 250 MG, UNK
     Route: 048
     Dates: start: 20110108
  12. NASCOBAL [Concomitant]
     Active Substance: CYANOCOBALAMIN
     Dosage: 500MCG
     Dates: start: 20110117

REACTIONS (3)
  - General physical health deterioration [None]
  - Acute myocardial infarction [None]
  - Injury [None]

NARRATIVE: CASE EVENT DATE: 20110217
